FAERS Safety Report 8485513-8 (Version None)
Quarter: 2012Q3

REPORT INFORMATION
  Report Type: 
  Country: None (occurrence: None)
  Receive Date: 20120703
  Receipt Date: 20120618
  Transmission Date: 20120928
  Serious: Yes (Other)
  Sender: FDA-Public Use
  Company Number: US-ROCHE-1082028

PATIENT
  Sex: Male

DRUGS (6)
  1. PREDNISONE TAB [Suspect]
     Indication: IMMUNOSUPPRESSION
     Dosage: 60 MG TAPERING TO 0 OVER 1 MONTH
     Route: 048
  2. BASILIXIMAB [Suspect]
     Indication: IMMUNOSUPPRESSION
     Dosage: 2 DOSES
     Route: 042
  3. TACROLIMUS [Suspect]
     Indication: IMMUNOSUPPRESSION
     Dosage: 4 TO 8 NG/ML
     Route: 048
  4. CELLCEPT [Suspect]
     Indication: IMMUNOSUPPRESSION
     Route: 048
  5. METHYLPREDNISOLONE [Suspect]
     Indication: IMMUNOSUPPRESSION
     Dosage: PRIOR TO SURGERY
     Route: 042
  6. METHYLPREDNISOLONE [Suspect]
     Route: 048

REACTIONS (8)
  - DYSPNOEA [None]
  - DIARRHOEA [None]
  - NAUSEA [None]
  - ABDOMINAL DISTENSION [None]
  - DECREASED APPETITE [None]
  - VOMITING [None]
  - ENCEPHALOPATHY [None]
  - ATRIAL FIBRILLATION [None]
